FAERS Safety Report 7095384-2 (Version None)
Quarter: 2010Q4

REPORT INFORMATION
  Report Type: 
  Country: None (occurrence: None)
  Receive Date: 20101111
  Receipt Date: 20101105
  Transmission Date: 20110411
  Serious: Yes (Death, Hospitalization, Other)
  Sender: FDA-Public Use
  Company Number: CA-CELGENEUS-028-21880-10011698

PATIENT
  Sex: Female

DRUGS (11)
  1. REVLIMID [Suspect]
     Indication: MULTIPLE MYELOMA
     Route: 048
     Dates: start: 20090101, end: 20090801
  2. REVLIMID [Suspect]
     Route: 048
     Dates: start: 20081001, end: 20090401
  3. REVLIMID [Suspect]
     Route: 048
     Dates: start: 20091201, end: 20100121
  4. VELCADE [Concomitant]
     Route: 065
     Dates: start: 20100129
  5. LEVOTHYROXINE [Concomitant]
     Route: 065
  6. DOCUSATE [Concomitant]
     Route: 065
  7. LORAZEPAM [Concomitant]
     Route: 065
  8. IRON [Concomitant]
     Route: 065
  9. ZANTAC [Concomitant]
     Route: 065
  10. SENOKOT [Concomitant]
     Route: 065
  11. ANTIBIOTICS [Concomitant]
     Route: 051

REACTIONS (6)
  - ARTHRITIS INFECTIVE [None]
  - CONVULSION [None]
  - DEATH [None]
  - DISEASE PROGRESSION [None]
  - FALL [None]
  - HYPOGLYCAEMIA [None]
